FAERS Safety Report 21684261 (Version 1)
Quarter: 2022Q4

REPORT INFORMATION
  Report Type: Spontaneous
  Country: US (occurrence: None)
  Receive Date: 20221203
  Receipt Date: 20221203
  Transmission Date: 20230112
  Serious: Yes (Hospitalization)
  Sender: FDA-Public Use
  Company Number: None

PATIENT
  Sex: Male
  Weight: 58.74 kg

DRUGS (10)
  1. CYCLOPHOSPHAMIDE [Suspect]
     Active Substance: CYCLOPHOSPHAMIDE
     Dates: end: 20221122
  2. CYTARABINE [Suspect]
     Active Substance: CYTARABINE
     Dates: end: 20221201
  3. DEXAMETHASONE [Suspect]
     Active Substance: DEXAMETHASONE
     Dates: end: 20221107
  4. DOXORUBICIN HYDROCHLORIDE [Suspect]
     Active Substance: DOXORUBICIN HYDROCHLORIDE
     Dates: end: 20221101
  5. METHOTREXATE [Suspect]
     Active Substance: METHOTREXATE
     Dates: end: 20221130
  6. METHOTREXATE [Suspect]
     Active Substance: METHOTREXATE
     Dates: end: 20221130
  7. ONCASPAR [Suspect]
     Active Substance: PEGASPARGASE
     Dates: end: 20221021
  8. RITUXIMAB [Suspect]
     Active Substance: RITUXIMAB
     Dates: end: 20221025
  9. THIOGUANINE ANHYDROUS [Suspect]
     Active Substance: THIOGUANINE ANHYDROUS
     Dates: end: 20221130
  10. VINCRISTINE SULFATE [Suspect]
     Active Substance: VINCRISTINE SULFATE
     Dates: end: 20221101

REACTIONS (11)
  - Pyrexia [None]
  - Tachycardia [None]
  - Chills [None]
  - White blood cell count decreased [None]
  - Haemoglobin decreased [None]
  - Platelet count decreased [None]
  - Neutrophil count decreased [None]
  - Blood creatinine decreased [None]
  - Aspartate aminotransferase increased [None]
  - Alanine aminotransferase increased [None]
  - Procalcitonin increased [None]

NARRATIVE: CASE EVENT DATE: 20221201
